FAERS Safety Report 4580473-4 (Version None)
Quarter: 2005Q1

REPORT INFORMATION
  Report Type: 
  Country: None (occurrence: None)
  Receive Date: 20050127
  Receipt Date: 20041110
  Transmission Date: 20050727
  Serious: No
  Sender: FDA-Public Use
  Company Number: USA040875465

PATIENT
  Age: 60 Year
  Sex: Male

DRUGS (4)
  1. STRATTERA [Suspect]
     Indication: DISTURBANCE IN ATTENTION
     Dosage: 100 MG/1 DAY
     Dates: start: 20030201
  2. LEXAPRO [Concomitant]
  3. PRINIVIL [Concomitant]
  4. ALDACTAZIDE [Concomitant]

REACTIONS (6)
  - EARLY MORNING AWAKENING [None]
  - ERECTILE DYSFUNCTION [None]
  - FEELING ABNORMAL [None]
  - HYPERHIDROSIS [None]
  - NAUSEA [None]
  - URINARY HESITATION [None]
